FAERS Safety Report 24199617 (Version 1)
Quarter: 2024Q3

REPORT INFORMATION
  Report Type: Other
  Country: IT (occurrence: IT)
  Receive Date: 20240812
  Receipt Date: 20240812
  Transmission Date: 20241017
  Serious: Yes (Hospitalization, Other)
  Sender: EMD SERONO INC
  Company Number: IT-Merck Healthcare KGaA-2024041757

PATIENT
  Age: 73 Year
  Sex: Male

DRUGS (1)
  1. METFORMIN HYDROCHLORIDE [Suspect]
     Active Substance: METFORMIN HYDROCHLORIDE
     Indication: Product used for unknown indication

REACTIONS (6)
  - Toxicity to various agents [Recovered/Resolved]
  - Biopsy prostate [Unknown]
  - Urinary bladder haemorrhage [Unknown]
  - Acute kidney injury [Unknown]
  - Anaemia [Unknown]
  - Lactic acidosis [Recovered/Resolved]
